FAERS Safety Report 6063096-X (Version None)
Quarter: 2009Q1

REPORT INFORMATION
  Report Type: 
  Country: None (occurrence: None)
  Receive Date: 20090203
  Receipt Date: 20090130
  Transmission Date: 20090719
  Serious: No
  Sender: FDA-Public Use
  Company Number: PHBS2006BE01639

PATIENT
  Sex: Male

DRUGS (5)
  1. ELIDEL [Suspect]
     Indication: DERMATITIS ATOPIC
     Dates: start: 20021219, end: 20031230
  2. ELIDEL [Suspect]
     Dosage: 1 TUBE PER WEEK
     Route: 061
     Dates: end: 20060101
  3. ZOCOR [Concomitant]
     Indication: HYPERCHOLESTEROLAEMIA
     Dosage: UNK
  4. SYMBICORT [Concomitant]
     Dosage: UNK
  5. DIPROSONE [Concomitant]
     Dosage: UNK

REACTIONS (4)
  - FLUSHING [None]
  - HOT FLUSH [None]
  - NEURON-SPECIFIC ENOLASE INCREASED [None]
  - POSITRON EMISSION TOMOGRAM ABNORMAL [None]
